FAERS Safety Report 4304511-9 (Version None)
Quarter: 2004Q1

REPORT INFORMATION
  Report Type: 
  Country: None (occurrence: None)
  Receive Date: 20040224
  Receipt Date: 20040218
  Transmission Date: 20041129
  Serious: Yes (Hospitalization)
  Sender: FDA-Public Use
  Company Number: 2003190779JP

PATIENT
  Age: 75 Year
  Sex: Female

DRUGS (6)
  1. CABERGOLINE [Suspect]
     Indication: PARKINSON'S DISEASE
     Dosage: 0.25 MG, BID, ORAL
     Route: 048
     Dates: start: 20001122, end: 20011010
  2. EC DOPARL (BENSERAZIDE HYDROCHLORIDE) [Concomitant]
  3. SYMMETREL [Concomitant]
  4. DEPAS (ETIZOLAM) [Concomitant]
  5. BUFFERIN (ALUMINUM GLYCINATE, MAGNESIUM CARBONATE) [Concomitant]
  6. NAUZELIN (DOMPERINDONE) [Concomitant]

REACTIONS (4)
  - AKINESIA [None]
  - DEHYDRATION [None]
  - FALL [None]
  - LOSS OF CONSCIOUSNESS [None]
